FAERS Safety Report 10655187 (Version 1)
Quarter: 2014Q4

REPORT INFORMATION
  Report Type: Spontaneous
  Country: GB (occurrence: GB)
  Receive Date: 20141216
  Receipt Date: 20141216
  Transmission Date: 20150529
  Serious: Yes (Other)
  Sender: FDA-Public Use
  Company Number: GB-WATSON-2014-26480

PATIENT
  Sex: Female

DRUGS (2)
  1. FENTANYL. [Suspect]
     Active Substance: FENTANYL
     Indication: PRODUCT USED FOR UNKNOWN INDICATION
     Dosage: 25 ?G, Q1H
     Route: 003
  2. FENTANYL. [Suspect]
     Active Substance: FENTANYL
     Dosage: 25 ?G, Q1H
     Route: 003

REACTIONS (2)
  - Syncope [Unknown]
  - Dizziness [Unknown]
